FAERS Safety Report 6989503-3 (Version None)
Quarter: 2010Q3

REPORT INFORMATION
  Report Type: 
  Country: None (occurrence: None)
  Receive Date: 20100916
  Receipt Date: 20091202
  Transmission Date: 20110219
  Serious: Yes (Hospitalization)
  Sender: FDA-Public Use
  Company Number: SE-PFIZER INC-2009304647

PATIENT
  Sex: Female

DRUGS (7)
  1. LYRICA [Suspect]
     Dosage: 75 MG, 2X/DAY
     Route: 048
     Dates: start: 20091016, end: 20091025
  2. LYRICA [Suspect]
     Dosage: 4.2 G, SINGLE
     Route: 048
     Dates: start: 20091026, end: 20091026
  3. ZOLPIDEM TARTRATE [Concomitant]
     Dosage: UNK
  4. NALTREXONE [Concomitant]
     Dosage: UNK
  5. OXASCAND [Concomitant]
     Dosage: UNK
  6. IMOVANE [Concomitant]
     Dosage: UNK
  7. ZYPREXA [Concomitant]
     Dosage: UNK

REACTIONS (2)
  - DRUG ABUSE [None]
  - PSYCHOTIC DISORDER [None]
